FAERS Safety Report 21401318 (Version 3)
Quarter: 2022Q4

REPORT INFORMATION
  Report Type: Spontaneous
  Country: IL (occurrence: IL)
  Receive Date: 20221003
  Receipt Date: 20221019
  Transmission Date: 20230113
  Serious: Yes (Other)
  Sender: FDA-Public Use
  Company Number: IL-ABBVIE-4134853

PATIENT
  Age: 63 Year
  Sex: Male

DRUGS (6)
  1. SKYRIZI [Suspect]
     Active Substance: RISANKIZUMAB-RZAA
     Indication: Psoriasis
     Dosage: 360 MG, MAINTENANCE DOSE
     Route: 058
     Dates: start: 202006
  2. SKYRIZI [Suspect]
     Active Substance: RISANKIZUMAB-RZAA
     Indication: Crohn^s disease
     Dosage: 180 MG, MAINTENANCE DOSE
     Route: 058
     Dates: start: 202207, end: 202207
  3. PREDNISONE [Concomitant]
     Active Substance: PREDNISONE
     Indication: Product used for unknown indication
     Dates: start: 2019
  4. PREDNISONE [Concomitant]
     Active Substance: PREDNISONE
     Indication: Product used for unknown indication
     Dates: start: 2022
  5. BISOPROLOL FUMARATE [Concomitant]
     Active Substance: BISOPROLOL FUMARATE
     Indication: Psoriasis
  6. SKYRIZI [Suspect]
     Active Substance: RISANKIZUMAB-RZAA
     Indication: Crohn^s disease
     Dosage: 600 MG, LOADING DOSE ON WEEKS 0,4,8
     Route: 042

REACTIONS (2)
  - Lung adenocarcinoma stage IV [Recovered/Resolved with Sequelae]
  - Lung carcinoma cell type unspecified stage IV [Recovered/Resolved with Sequelae]

NARRATIVE: CASE EVENT DATE: 20220701
